FAERS Safety Report 13818995 (Version 2)
Quarter: 2017Q3

REPORT INFORMATION
  Report Type: Spontaneous
  Country: US (occurrence: US)
  Receive Date: 20170801
  Receipt Date: 20170810
  Transmission Date: 20171127
  Serious: Yes (Hospitalization, Other)
  Sender: FDA-Public Use
  Company Number: US-HORIZON-RAV-0196-2017

PATIENT
  Age: 7 Month
  Sex: Female

DRUGS (4)
  1. CITRULLINE [Concomitant]
     Active Substance: CITRULLINE
  2. ARGININE [Concomitant]
     Active Substance: ARGININE
  3. BUPHENYL [Concomitant]
     Active Substance: SODIUM PHENYLBUTYRATE
  4. RAVICTI [Suspect]
     Active Substance: GLYCEROL PHENYLBUTYRATE
     Indication: ORNITHINE TRANSCARBAMOYLASE DEFICIENCY
     Dosage: RAVICTI WAS STARTED ON 04-FEB-2017 WITH 2 G DAILY, DOSAGE WAS INCREASED SEVERAL TIMES (NARRATIVE)
     Dates: start: 20170204

REACTIONS (4)
  - Laboratory test abnormal [Recovered/Resolved]
  - Liver transplant [Unknown]
  - Vomiting [Recovered/Resolved]
  - Gastrointestinal disorder [Recovered/Resolved]
